FAERS Safety Report 10444429 (Version 1)
Quarter: 2014Q3

REPORT INFORMATION
  Report Type: Spontaneous
  Country: JP (occurrence: None)
  Receive Date: 20140908
  Receipt Date: 20140908
  Transmission Date: 20150326
  Serious: Yes (Life-Threatening)
  Sender: FDA-Public Use
  Company Number: DAV-AE-MTX-14-44

PATIENT
  Age: 11 Year
  Sex: Male

DRUGS (10)
  1. IFOSFAMIDE. [Concomitant]
     Active Substance: IFOSFAMIDE
  2. CISPLATIN. [Concomitant]
     Active Substance: CISPLATIN
  3. MELPHALAN [Concomitant]
     Active Substance: MELPHALAN
  4. ETOPOSIDE. [Concomitant]
     Active Substance: ETOPOSIDE
  5. CYCLOPHOSPHAMIDE. [Concomitant]
     Active Substance: CYCLOPHOSPHAMIDE
  6. VINCRISTINE [Concomitant]
     Active Substance: VINCRISTINE
  7. METHOTREXATE [Suspect]
     Active Substance: METHOTREXATE
     Indication: OSTEOSARCOMA
     Dosage: 216G/ME2 X 1 YEAR
  8. DOXORUBICIN [Concomitant]
     Active Substance: DOXORUBICIN
  9. PIRARUBICIN [Concomitant]
     Active Substance: PIRARUBICIN
  10. THIOTEPA. [Concomitant]
     Active Substance: THIOTEPA

REACTIONS (1)
  - Myelodysplastic syndrome [None]
